FAERS Safety Report 13948110 (Version 1)
Quarter: 2017Q3

REPORT INFORMATION
  Report Type: Spontaneous
  Country: US (occurrence: US)
  Receive Date: 20170907
  Receipt Date: 20170907
  Transmission Date: 20171128
  Serious: Yes (Disabling)
  Sender: FDA-Public Use
  Company Number: None

PATIENT
  Age: 74 Year
  Sex: Female
  Weight: 72 kg

DRUGS (9)
  1. LEVOFLOXACIN INJECTION [Suspect]
     Active Substance: LEVOFLOXACIN
     Indication: PNEUMONIA
     Route: 030
     Dates: start: 20161208, end: 20161208
  2. LUTEIN [Concomitant]
     Active Substance: LUTEIN
  3. AMLODIPINE [Concomitant]
     Active Substance: AMLODIPINE BESYLATE
  4. VALACYLOVIR [Concomitant]
     Active Substance: VALACYCLOVIR HYDROCHLORIDE
  5. NATURAL VITAMIN E [Concomitant]
  6. LEVOFLOXACIN 750 MG TABLETS [Suspect]
     Active Substance: LEVOFLOXACIN
     Indication: PNEUMONIA
     Dosage: ?          QUANTITY:5 TABLET(S);?
     Route: 048
     Dates: start: 20161208, end: 20161212
  7. ALGAL 900 (OMEGA 3) [Concomitant]
  8. LYCOPENE [Concomitant]
     Active Substance: LYCOPENE
  9. YUVAFEM [Concomitant]
     Active Substance: ESTRADIOL HEMIHYDRATE

REACTIONS (7)
  - Inflammation [None]
  - Musculoskeletal stiffness [None]
  - Sciatic nerve neuropathy [None]
  - Insomnia [None]
  - Asthenia [None]
  - Bedridden [None]
  - Mobility decreased [None]

NARRATIVE: CASE EVENT DATE: 20170512
